FAERS Safety Report 16981230 (Version 1)
Quarter: 2019Q4

REPORT INFORMATION
  Report Type: Spontaneous
  Country: FR (occurrence: FR)
  Receive Date: 20191031
  Receipt Date: 20191031
  Transmission Date: 20200122
  Serious: Yes (Hospitalization)
  Sender: FDA-Public Use
  Company Number: FR-TEVA-2019-FR-1129239

PATIENT
  Age: 87 Year
  Sex: Female
  Weight: 78 kg

DRUGS (10)
  1. CYMBALTA [Concomitant]
     Active Substance: DULOXETINE HYDROCHLORIDE
  2. TANGANIL [Concomitant]
     Active Substance: ACETYLLEUCINE
  3. ROSUVASTATINE [Suspect]
     Active Substance: ROSUVASTATIN
     Indication: HYPERCHOLESTEROLAEMIA
     Dosage: 10 MG
     Route: 048
     Dates: end: 20190913
  4. SERESTA 10 MG, COMPRIM? [Concomitant]
     Active Substance: OXAZEPAM
  5. NOVONORM 1 MG, COMPRIM? [Suspect]
     Active Substance: REPAGLINIDE
     Indication: TYPE 2 DIABETES MELLITUS
     Dosage: 3 MG
     Route: 048
     Dates: start: 2019, end: 20190913
  6. IRBESARTAN. [Concomitant]
     Active Substance: IRBESARTAN
  7. BUSPIRONE (CHLORHYDRATE DE) [Concomitant]
     Active Substance: BUSPIRONE HYDROCHLORIDE
  8. PARIET 20 MG, COMPRIME GASTRO-RESISTANT [Suspect]
     Active Substance: RABEPRAZOLE SODIUM
     Indication: PRODUCT USED FOR UNKNOWN INDICATION
     Dosage: 20 MG
     Route: 048
     Dates: end: 20190913
  9. JANUVIA [Concomitant]
     Active Substance: SITAGLIPTIN PHOSPHATE
  10. DICETEL 100 MG, COMPRIME PELLICULE [Concomitant]

REACTIONS (2)
  - Hepatocellular injury [Recovering/Resolving]
  - Cholestasis [Recovering/Resolving]

NARRATIVE: CASE EVENT DATE: 20190909
